FAERS Safety Report 5408444-6 (Version None)
Quarter: 2007Q3

REPORT INFORMATION
  Report Type: 
  Country: None (occurrence: None)
  Receive Date: 20070808
  Receipt Date: 20070727
  Transmission Date: 20080115
  Serious: Yes (Hospitalization, Other)
  Sender: FDA-Public Use
  Company Number: JP-ROCHE-506272

PATIENT
  Age: 59 Year
  Sex: Male

DRUGS (7)
  1. CELLCEPT [Suspect]
     Route: 048
  2. ANTIPROTOZOAL AGENTS [Suspect]
     Indication: NOCARDIOSIS
     Route: 048
  3. STEROID NOS [Suspect]
     Indication: DRUG USE FOR UNKNOWN INDICATION
     Dosage: DRUG NAME REPORTED AS STEROID PULSE THERAPY.
     Route: 065
  4. BAKTAR [Suspect]
     Indication: NOCARDIOSIS
     Route: 065
     Dates: start: 20070101
  5. NEORAL [Concomitant]
     Indication: DRUG USE FOR UNKNOWN INDICATION
     Dosage: INDICATION REPORTED AS 'IMMUNOTHERAPY'.
     Route: 048
  6. SIMULECT [Concomitant]
     Indication: DRUG USE FOR UNKNOWN INDICATION
     Dosage: INDICATION REPORTED AS 'IMMUNOTHERAPY'.
  7. MEDROL [Concomitant]
     Indication: DRUG USE FOR UNKNOWN INDICATION
     Dosage: INDICATION REPORTED AS 'IMMUNOTHERAPY'.
     Route: 048

REACTIONS (4)
  - KIDNEY TRANSPLANT REJECTION [None]
  - LIVER TRANSPLANT REJECTION [None]
  - NOCARDIOSIS [None]
  - RENAL TUBULAR DISORDER [None]
